FAERS Safety Report 23379087 (Version 2)
Quarter: 2024Q1

REPORT INFORMATION
  Report Type: Spontaneous
  Country: GB (occurrence: GB)
  Receive Date: 20240108
  Receipt Date: 20240111
  Transmission Date: 20240410
  Serious: Yes (Other)
  Sender: FDA-Public Use
  Company Number: None

PATIENT
  Age: 25 Year
  Sex: Female

DRUGS (4)
  1. CABERGOLINE [Interacting]
     Active Substance: CABERGOLINE
     Indication: Pituitary tumour
     Dosage: 1 MG, 2X/WEEK
  2. CARBAMAZEPINE [Interacting]
     Active Substance: CARBAMAZEPINE
     Indication: Trigeminal neuralgia
     Dosage: 200MG TWICE DAILY
     Dates: start: 20230904
  3. DICLOFENAC [Concomitant]
     Active Substance: DICLOFENAC
     Indication: Trigeminal neuralgia
     Dates: start: 20230904
  4. DIHYDROCODEINE [Concomitant]
     Active Substance: DIHYDROCODEINE
     Indication: Trigeminal neuralgia
     Dates: start: 20230904

REACTIONS (2)
  - Drug interaction [Not Recovered/Not Resolved]
  - Drug clearance increased [Unknown]

NARRATIVE: CASE EVENT DATE: 20231201
